FAERS Safety Report 20383130 (Version 2)
Quarter: 2022Q1

REPORT INFORMATION
  Report Type: Spontaneous
  Country: GB (occurrence: GB)
  Receive Date: 20220127
  Receipt Date: 20220207
  Transmission Date: 20220423
  Serious: Yes (Other)
  Sender: FDA-Public Use
  Company Number: GB-NOVARTISPH-NVSC2022GB016618

PATIENT
  Age: 46 Year
  Sex: Female

DRUGS (16)
  1. LETROZOLE [Suspect]
     Active Substance: LETROZOLE
     Indication: Breast cancer metastatic
     Dosage: 2.5 MG, QD
     Route: 048
     Dates: start: 20190709
  2. DOCETAXEL [Suspect]
     Active Substance: DOCETAXEL
     Indication: Breast cancer metastatic
     Dosage: 120 MG, TIW
     Route: 042
     Dates: start: 20160314, end: 20160810
  3. PERTUZUMAB [Suspect]
     Active Substance: PERTUZUMAB
     Indication: Breast cancer metastatic
     Dosage: 840 MG, TIW (25 APR 2016)
     Route: 042
     Dates: start: 20160516
  4. TAMOXIFEN [Suspect]
     Active Substance: TAMOXIFEN
     Indication: Breast cancer metastatic
     Dosage: 20 MG, QD
     Route: 048
     Dates: start: 20161010, end: 20190708
  5. TRASTUZUMAB [Suspect]
     Active Substance: TRASTUZUMAB
     Indication: Breast cancer metastatic
     Dosage: 600 MG, TIW
     Route: 041
     Dates: start: 20160425
  6. BUTYLSCOPOLAMINE BROMIDE [Concomitant]
     Active Substance: BUTYLSCOPOLAMINE BROMIDE
     Indication: Abdominal pain
     Dosage: 20 MG, QID
     Route: 048
     Dates: start: 20160625
  7. CEPHRADINE [Concomitant]
     Active Substance: CEPHRADINE
     Indication: Urinary tract infection
     Dosage: 250 MG, QID
     Route: 048
     Dates: start: 20201207, end: 20201214
  8. CODEINE [Concomitant]
     Active Substance: CODEINE
     Indication: Musculoskeletal chest pain
     Dosage: 30 MG, BID
     Route: 048
     Dates: start: 20160919
  9. FLUCLOXACILLIN [Concomitant]
     Active Substance: FLUCLOXACILLIN
     Indication: Cellulitis
     Dosage: 500 MG, QID
     Route: 048
     Dates: start: 20201215, end: 20201222
  10. IBUPROFEN [Concomitant]
     Active Substance: IBUPROFEN
     Indication: Musculoskeletal pain
     Dosage: 200 MG, AS NECESSARY
     Route: 048
     Dates: start: 20160612
  11. POLYETHYLENE GLYCOL 3350\POTASSIUM CHLORIDE\SODIUM BICARBONATE\SODIUM [Concomitant]
     Active Substance: POLYETHYLENE GLYCOL 3350\POTASSIUM CHLORIDE\SODIUM BICARBONATE\SODIUM CHLORIDE
     Indication: Product used for unknown indication
     Dosage: UNK
     Route: 048
     Dates: start: 20160627
  12. NITROFURANTOIN [Concomitant]
     Active Substance: NITROFURANTOIN
     Indication: Urinary tract infection
     Dosage: 100 MG, BID
     Route: 048
     Dates: start: 20201202, end: 20201209
  13. OMEPRAZOLE [Concomitant]
     Active Substance: OMEPRAZOLE
     Indication: Metastases to central nervous system
     Dosage: 20 MG, BID
     Route: 048
     Dates: start: 201909
  14. MORPHINE SULFATE [Concomitant]
     Active Substance: MORPHINE SULFATE
     Indication: Product used for unknown indication
     Dosage: 10 MG,  AS NECESSARY
     Route: 048
     Dates: start: 20210311
  15. ACETAMINOPHEN [Concomitant]
     Active Substance: ACETAMINOPHEN
     Indication: Musculoskeletal pain
     Dosage: 1 G,  AS NECESSARY
     Route: 048
     Dates: start: 20160612
  16. PERMETHRINE [Concomitant]
     Indication: Skin infection
     Dosage: 5 %
     Route: 061
     Dates: start: 20210311, end: 20210311

REACTIONS (3)
  - Constipation [Recovered/Resolved]
  - Lymphoedema [Recovered/Resolved]
  - Metastases to central nervous system [Recovered/Resolved]

NARRATIVE: CASE EVENT DATE: 20161001
